FAERS Safety Report 16276646 (Version 3)
Quarter: 2019Q2

REPORT INFORMATION
  Report Type: Spontaneous
  Country: US (occurrence: US)
  Receive Date: 20190506
  Receipt Date: 20190607
  Transmission Date: 20190711
  Serious: Yes (Other)
  Sender: FDA-Public Use
  Company Number: US-KYOWAKIRIN-2019BKK007055

PATIENT

DRUGS (2)
  1. POTELIGEO [Suspect]
     Active Substance: MOGAMULIZUMAB-KPKC
     Indication: CUTANEOUS T-CELL LYMPHOMA
     Dosage: UNKNOWN
     Route: 065
     Dates: start: 20190221, end: 20190311
  2. NITROGEN. [Concomitant]
     Active Substance: NITROGEN
     Indication: CUTANEOUS T-CELL LYMPHOMA
     Dosage: UNK
     Route: 061

REACTIONS (7)
  - Anxiety [Unknown]
  - Malaise [Unknown]
  - Disease progression [Unknown]
  - Decreased appetite [Unknown]
  - Pruritus [Unknown]
  - Vertigo [Unknown]
  - Dehydration [Unknown]

NARRATIVE: CASE EVENT DATE: 2019
